FAERS Safety Report 14041552 (Version 1)
Quarter: 2017Q4

REPORT INFORMATION
  Report Type: Report from Study
  Country: US (occurrence: US)
  Receive Date: 20171004
  Receipt Date: 20171004
  Transmission Date: 20180321
  Serious: No
  Sender: FDA-Public Use
  Company Number: US-AMGEN-USASL2016151393

PATIENT
  Age: 81 Year
  Sex: Female
  Weight: 85.3 kg

DRUGS (1)
  1. PROLIA [Suspect]
     Active Substance: DENOSUMAB
     Indication: OSTEOPOROSIS
     Dosage: UNK
     Route: 065

REACTIONS (4)
  - Hyperparathyroidism [Unknown]
  - Hypertension [Unknown]
  - Hyperlipidaemia [Unknown]
  - Back pain [Unknown]
